FAERS Safety Report 6484772-0 (Version None)
Quarter: 2009Q4

REPORT INFORMATION
  Report Type: 
  Country: None (occurrence: None)
  Receive Date: 20091209
  Receipt Date: 20091201
  Transmission Date: 20100525
  Serious: Yes (Other)
  Sender: FDA-Public Use
  Company Number: US-GILEAD-2009-0025782

PATIENT
  Age: 41 Year
  Sex: Female

DRUGS (4)
  1. ATRIPLA [Suspect]
     Indication: HIV INFECTION
     Route: 048
     Dates: end: 20091016
  2. TRUVADA [Suspect]
     Indication: HIV INFECTION
     Route: 048
     Dates: start: 20091016
  3. REYATAZ [Concomitant]
     Indication: HIV INFECTION
     Dates: start: 20091016
  4. NORVIR [Concomitant]
     Indication: HIV INFECTION
     Dates: start: 20091016

REACTIONS (1)
  - ABORTION SPONTANEOUS [None]
